FAERS Safety Report 18383430 (Version 2)
Quarter: 2020Q4

REPORT INFORMATION
  Report Type: Spontaneous
  Country: US (occurrence: US)
  Receive Date: 20201014
  Receipt Date: 20201209
  Transmission Date: 20210114
  Serious: Yes (Other)
  Sender: FDA-Public Use
  Company Number: US-JNJFOC-20201016175

PATIENT
  Sex: Male

DRUGS (3)
  1. OXYMORPHONE [Suspect]
     Active Substance: OXYMORPHONE
     Indication: BACK PAIN
     Route: 065
  2. DURAGESIC [Suspect]
     Active Substance: FENTANYL
     Indication: BACK PAIN
     Route: 065
  3. HYDROCODONE [Suspect]
     Active Substance: HYDROCODONE
     Indication: SCOLIOSIS
     Route: 065

REACTIONS (2)
  - Intervertebral disc protrusion [Unknown]
  - Intervertebral disc degeneration [Unknown]
